FAERS Safety Report 9406042 (Version 3)
Quarter: 2013Q3

REPORT INFORMATION
  Report Type: Spontaneous
  Country: GB (occurrence: GB)
  Receive Date: 20130717
  Receipt Date: 20130731
  Transmission Date: 20140515
  Serious: Yes (Other)
  Sender: FDA-Public Use
  Company Number: GB-009507513-1307GBR007439

PATIENT
  Sex: 0

DRUGS (1)
  1. ONCOTICE [Suspect]

REACTIONS (2)
  - Bladder cancer [Unknown]
  - Ureteric cancer [Unknown]
